FAERS Safety Report 25141366 (Version 1)
Quarter: 2025Q1

REPORT INFORMATION
  Report Type: Spontaneous
  Country: ES (occurrence: ES)
  Receive Date: 20250331
  Receipt Date: 20250331
  Transmission Date: 20250409
  Serious: Yes (Hospitalization)
  Sender: FERRING
  Company Number: None

PATIENT

DRUGS (2)
  1. DESMOPRESSIN [Interacting]
     Active Substance: DESMOPRESSIN
     Indication: Craniopharyngioma
     Dosage: 60 UG, 2 TIMES DAILY (EVERY 12 HOURS)
     Route: 060
     Dates: start: 20250204, end: 20250305
  2. HYDROCORTISONE [Interacting]
     Active Substance: HYDROCORTISONE
     Indication: Craniopharyngioma
     Dosage: 20 MG, 3 TIMES DAILY (EVERY 8 HOURS)
     Route: 048
     Dates: start: 20250121, end: 20250221

REACTIONS (4)
  - Generalised oedema [Recovering/Resolving]
  - Weight increased [Recovering/Resolving]
  - Drug interaction [Unknown]
  - Product use in unapproved indication [Recovered/Resolved]

NARRATIVE: CASE EVENT DATE: 20250204
